FAERS Safety Report 12853178 (Version 1)
Quarter: 2016Q4

REPORT INFORMATION
  Report Type: Spontaneous
  Country: US (occurrence: US)
  Receive Date: 20161017
  Receipt Date: 20161017
  Transmission Date: 20170207
  Serious: No
  Sender: FDA-Public Use
  Company Number: US-JAZZ-2016-US-014182

PATIENT
  Sex: Female

DRUGS (42)
  1. XYREM [Suspect]
     Active Substance: SODIUM OXYBATE
     Indication: CATAPLEXY
     Dosage: DOSE ADJUSTMENTS
     Route: 048
     Dates: start: 201012, end: 201605
  2. HALOPERIDOL. [Concomitant]
     Active Substance: HALOPERIDOL
  3. WELLBUTRIN [Concomitant]
     Active Substance: BUPROPION HYDROCHLORIDE
  4. BAYER ASPIRIN [Concomitant]
     Active Substance: ASPIRIN
  5. LAMICTAL [Concomitant]
     Active Substance: LAMOTRIGINE
  6. VITAMIN D3 [Concomitant]
     Active Substance: CHOLECALCIFEROL
  7. ESTRADIOL. [Concomitant]
     Active Substance: ESTRADIOL
  8. CALCIUM-MAGNSEIUM WITH ZINC [Concomitant]
  9. ZYRTEC [Concomitant]
     Active Substance: CETIRIZINE HYDROCHLORIDE
  10. ADVIL [Concomitant]
     Active Substance: IBUPROFEN
  11. CELEBREX [Concomitant]
     Active Substance: CELECOXIB
  12. CENTRUM COMPLETE MULTIVITMAINE [Concomitant]
  13. MEDROXYPROGESTERONE [Concomitant]
     Active Substance: MEDROXYPROGESTERONE
  14. CLARITIN-D 12 HOUR [Concomitant]
     Active Substance: LORATADINE\PSEUDOEPHEDRINE SULFATE
  15. WELLBUTRIN SR [Concomitant]
     Active Substance: BUPROPION HYDROCHLORIDE
  16. INVEGA [Concomitant]
     Active Substance: PALIPERIDONE
  17. PROBIOTIC ACIDOPHILUS [Concomitant]
     Active Substance: LACTOBACILLUS ACIDOPHILUS
  18. MULTIVITAMINS [Concomitant]
     Active Substance: VITAMINS
  19. PAROXETINE HCL [Concomitant]
     Active Substance: PAROXETINE HYDROCHLORIDE
  20. FISH OIL + VITAMIN D3 [Concomitant]
  21. TRAZODONE HYDROCHLORIDE. [Concomitant]
     Active Substance: TRAZODONE HYDROCHLORIDE
  22. ADDERALL [Concomitant]
     Active Substance: AMPHETAMINE ASPARTATE\AMPHETAMINE SULFATE\DEXTROAMPHETAMINE SACCHARATE\DEXTROAMPHETAMINE SULFATE
  23. XYREM [Suspect]
     Active Substance: SODIUM OXYBATE
     Indication: NARCOLEPSY
     Dosage: 3 G, BID
     Route: 048
     Dates: start: 201011, end: 201012
  24. VITAMIN E [Concomitant]
     Active Substance: .ALPHA.-TOCOPHEROL
  25. FLUPHENAZINE HCL [Concomitant]
     Active Substance: FLUPHENAZINE HYDROCHLORIDE
  26. ZYPREXA [Concomitant]
     Active Substance: OLANZAPINE
  27. BENZTROPINE MESILATE [Concomitant]
     Active Substance: BENZTROPINE MESYLATE
  28. CENTRUM [Concomitant]
     Active Substance: VITAMINS
  29. MELATONIN [Concomitant]
     Active Substance: MELATONIN
  30. RISPERDAL [Concomitant]
     Active Substance: RISPERIDONE
  31. VITAMIN D [Concomitant]
     Active Substance: CHOLECALCIFEROL
  32. NUVIGIL [Concomitant]
     Active Substance: ARMODAFINIL
  33. XYREM [Suspect]
     Active Substance: SODIUM OXYBATE
     Dosage: 4.5 G, BID
     Route: 048
     Dates: start: 201605
  34. VITAMIN B COMPLEX [Concomitant]
     Active Substance: CYANOCOBALAMIN\DEXPANTHENOL\NIACINAMIDE\PYRIDOXINE HYDROCHLORIDE\RIBOFLAVIN 5^-PHOSPHATE SODIUM\THIAMINE HYDROCHLORIDE\VITAMIN B COMPLEX
  35. CALCIUM CARBONATE. [Concomitant]
     Active Substance: CALCIUM CARBONATE
  36. PRISTIQ EXTENDED-RELEASE [Concomitant]
     Active Substance: DESVENLAFAXINE SUCCINATE
  37. FLAXSEED [Concomitant]
     Active Substance: FLAX SEED
  38. CLONAZEPAM. [Concomitant]
     Active Substance: CLONAZEPAM
  39. VITAMIN C [Concomitant]
     Active Substance: ASCORBIC ACID
  40. CYMBALTA [Concomitant]
     Active Substance: DULOXETINE HYDROCHLORIDE
  41. PRAMIPEXOLE DIHCL [Concomitant]
     Active Substance: PRAMIPEXOLE DIHYDROCHLORIDE
  42. PROZAC [Concomitant]
     Active Substance: FLUOXETINE HYDROCHLORIDE

REACTIONS (1)
  - Menopause [Unknown]
